FAERS Safety Report 12546510 (Version 1)
Quarter: 2016Q3

REPORT INFORMATION
  Report Type: Spontaneous
  Country: EC (occurrence: EC)
  Receive Date: 20160711
  Receipt Date: 20160711
  Transmission Date: 20161109
  Serious: Yes (Other)
  Sender: FDA-Public Use
  Company Number: EC-TAKEDA-2016TUS011713

PATIENT
  Age: 53 Year
  Sex: Male
  Weight: 65.76 kg

DRUGS (1)
  1. DEXILANT [Suspect]
     Active Substance: DEXLANSOPRAZOLE
     Indication: GASTRITIS
     Dosage: 30 MG, QD
     Route: 048
     Dates: start: 20160512, end: 20160514

REACTIONS (5)
  - Anxiety [Recovered/Resolved]
  - Off label use [Recovered/Resolved]
  - Dyspepsia [Recovered/Resolved]
  - Feeling of despair [Recovered/Resolved]
  - Nausea [Recovered/Resolved]

NARRATIVE: CASE EVENT DATE: 20160512
